FAERS Safety Report 9752498 (Version 1)
Quarter: 2013Q4

REPORT INFORMATION
  Report Type: Spontaneous
  Country: US (occurrence: US)
  Receive Date: 20131213
  Receipt Date: 20131213
  Transmission Date: 20140711
  Serious: Yes (Other)
  Sender: FDA-Public Use
  Company Number: US-ELI_LILLY_AND_COMPANY-US201312002407

PATIENT
  Sex: Male

DRUGS (1)
  1. ZYPREXA [Suspect]
     Indication: TOURETTE^S DISORDER
     Dosage: 1 DF, UNKNOWN
     Route: 065

REACTIONS (4)
  - Weight increased [Unknown]
  - Skin striae [Unknown]
  - Excessive skin [Unknown]
  - Off label use [Unknown]
